FAERS Safety Report 10190800 (Version 1)
Quarter: 2014Q2

REPORT INFORMATION
  Report Type: Spontaneous
  Country: NL (occurrence: NL)
  Receive Date: 20140523
  Receipt Date: 20140523
  Transmission Date: 20141212
  Serious: Yes (Hospitalization)
  Sender: FDA-Public Use
  Company Number: PHHY2014NL060839

PATIENT
  Age: 63 Year
  Sex: Female
  Weight: 75 kg

DRUGS (3)
  1. ZOLEDRONATE [Suspect]
     Indication: BREAST CANCER METASTATIC
     Dosage: 1 KEER PER MAAND 1 STUK(S)
     Route: 042
     Dates: start: 20140509, end: 20140510
  2. EVEROLIMUS [Concomitant]
     Route: 048
     Dates: start: 201402
  3. EXEMESTAAN [Concomitant]
     Route: 048
     Dates: start: 201402

REACTIONS (1)
  - Obstructive airways disorder [Recovered/Resolved]
